FAERS Safety Report 24953245 (Version 3)
Quarter: 2025Q2

REPORT INFORMATION
  Report Type: Spontaneous
  Country: US (occurrence: US)
  Receive Date: 20250211
  Receipt Date: 20250514
  Transmission Date: 20250716
  Serious: No
  Sender: NOVARTIS
  Company Number: US-002147023-NVSC2025US017584

PATIENT
  Sex: Female

DRUGS (1)
  1. COSENTYX [Suspect]
     Active Substance: SECUKINUMAB
     Indication: Product used for unknown indication
     Dosage: 300MG/2ML, QMO (USING FOR ABOUT 3 WEEKS)
     Route: 065
     Dates: start: 20250114

REACTIONS (3)
  - Accidental exposure to product [Unknown]
  - Product leakage [Unknown]
  - Incorrect dose administered by device [Unknown]
